FAERS Safety Report 5755485-5 (Version None)
Quarter: 2008Q2

REPORT INFORMATION
  Report Type: 
  Country: None (occurrence: None)
  Receive Date: 20080528
  Receipt Date: 20080515
  Transmission Date: 20081010
  Serious: Yes (Other)
  Sender: FDA-Public Use
  Company Number: DSA_31832_2008

PATIENT
  Age: 82 Year
  Sex: Female

DRUGS (7)
  1. ENALAPRIL MALEATE [Suspect]
     Indication: HYPERTENSION
     Dosage: 10 MG BID ORAL, DF
     Route: 048
     Dates: start: 19980501, end: 20080101
  2. ENALAPRIL MALEATE [Suspect]
     Indication: HYPERTENSION
     Dosage: 10 MG BID ORAL, DF
     Route: 048
     Dates: start: 20080101
  3. PANTOPRAZOLE [Concomitant]
  4. XYZAL [Concomitant]
  5. ZOLPIDEM TARTRATE [Concomitant]
  6. ACETAMINOPHEN [Concomitant]
  7. DICLOFENAC SODIUM [Concomitant]

REACTIONS (4)
  - CARDIAC FAILURE [None]
  - DIZZINESS [None]
  - NEPHROSCLEROSIS [None]
  - TACHYCARDIA [None]
